FAERS Safety Report 8775818 (Version 1)
Quarter: 2012Q4

REPORT INFORMATION
  Report Type: 
  Country: US (occurrence: US)
  Receive Date: 20120910
  Receipt Date: 20120910
  Transmission Date: 20130627
  Serious: No
  Sender: FDA-Public Use
  Company Number: US-ASTRAZENECA-2012SE60435

PATIENT
  Age: 58 Year
  Sex: Female
  Weight: 90.7 kg

DRUGS (3)
  1. ARIMIDEX [Suspect]
     Indication: BREAST CANCER
     Route: 048
     Dates: start: 20070810
  2. VITAMINS [Concomitant]
  3. FISH OIL [Concomitant]

REACTIONS (2)
  - Weight increased [Not Recovered/Not Resolved]
  - Trigger finger [Not Recovered/Not Resolved]
